FAERS Safety Report 5334227-1 (Version None)
Quarter: 2007Q2

REPORT INFORMATION
  Report Type: 
  Country: None (occurrence: None)
  Receive Date: 20070525
  Receipt Date: 20060412
  Transmission Date: 20071010
  Serious: No
  Sender: FDA-Public Use
  Company Number: A0601568A

PATIENT
  Age: 16 Month

DRUGS (1)
  1. BACTROBAN [Suspect]
     Indication: FUNGAL RASH
     Route: 061

REACTIONS (1)
  - DRUG INEFFECTIVE [None]
